FAERS Safety Report 5872992-5 (Version None)
Quarter: 2008Q3

REPORT INFORMATION
  Report Type: 
  Country: None (occurrence: None)
  Receive Date: 20080903
  Receipt Date: 20080820
  Transmission Date: 20090109
  Serious: Yes (Hospitalization)
  Sender: FDA-Public Use
  Company Number: 1-16553452

PATIENT
  Age: 18 Year
  Sex: Female

DRUGS (2)
  1. MINOCYCLINE (MANUFACTURER UNKNOWN) [Suspect]
     Indication: ACNE
  2. SERTRALINE [Concomitant]

REACTIONS (30)
  - ANION GAP INCREASED [None]
  - ASTHENIA [None]
  - BLOOD CREATINE PHOSPHOKINASE INCREASED [None]
  - CHEST DISCOMFORT [None]
  - CYST [None]
  - DEAFNESS [None]
  - DEAFNESS NEUROSENSORY [None]
  - DYSPNOEA [None]
  - DYSPNOEA EXERTIONAL [None]
  - EMOTIONAL DISTRESS [None]
  - ENDOCRINE DISORDER [None]
  - FACE OEDEMA [None]
  - FACIAL PARESIS [None]
  - FATIGUE [None]
  - GAIT DISTURBANCE [None]
  - GASTRITIS [None]
  - HEART RATE INCREASED [None]
  - INFECTIOUS MONONUCLEOSIS [None]
  - LACTIC ACIDOSIS [None]
  - METABOLIC ACIDOSIS [None]
  - MITOCHONDRIAL MYOPATHY [None]
  - MUSCLE ATROPHY [None]
  - MUSCLE FATIGUE [None]
  - MUSCLE SPASMS [None]
  - MUSCULAR WEAKNESS [None]
  - MUSCULOSKELETAL DISCOMFORT [None]
  - MYALGIA [None]
  - PRESYNCOPE [None]
  - RESPIRATORY RATE INCREASED [None]
  - WEIGHT DECREASED [None]
